FAERS Safety Report 7841849-2 (Version None)
Quarter: 2011Q4

REPORT INFORMATION
  Report Type: 
  Country: None (occurrence: None)
  Receive Date: 20111025
  Receipt Date: 20111014
  Transmission Date: 20120403
  Serious: Yes (Hospitalization)
  Sender: FDA-Public Use
  Company Number: US-JNJFOC-20111006851

PATIENT
  Sex: Male
  Weight: 97 kg

DRUGS (11)
  1. PAMIDRONATE DISODIUM [Concomitant]
  2. VITAMIN TAB [Concomitant]
  3. GABAPENTIN [Concomitant]
  4. ZOFRAN [Concomitant]
  5. MESALAMINE [Concomitant]
  6. FLONASE [Concomitant]
  7. INFLIXIMAB, RECOMBINANT [Suspect]
     Indication: INFLAMMATORY BOWEL DISEASE
     Route: 042
  8. ANTIBIOTICS [Concomitant]
     Indication: INFLAMMATORY BOWEL DISEASE
  9. MELATONIN [Concomitant]
  10. AMITRIPTYLINE HCL [Concomitant]
  11. DIAZEPAM [Concomitant]

REACTIONS (1)
  - INFLAMMATORY BOWEL DISEASE [None]
